FAERS Safety Report 8453559-1 (Version None)
Quarter: 2012Q2

REPORT INFORMATION
  Report Type: 
  Country: None (occurrence: None)
  Receive Date: 20120620
  Receipt Date: 20120618
  Transmission Date: 20120825
  Serious: Yes (Other)
  Sender: FDA-Public Use
  Company Number: JP-PFIZER INC-2012145728

PATIENT

DRUGS (2)
  1. VFEND [Suspect]
     Route: 048
  2. ZITHROMAX [Suspect]
     Dosage: 500 MG, 1X/DAY
     Route: 048

REACTIONS (2)
  - HALLUCINATION, VISUAL [None]
  - HALLUCINATION, AUDITORY [None]
